FAERS Safety Report 6021962-5 (Version None)
Quarter: 2008Q4

REPORT INFORMATION
  Report Type: 
  Country: None (occurrence: None)
  Receive Date: 20081229
  Receipt Date: 20081218
  Transmission Date: 20090506
  Serious: Yes (Death, Other)
  Sender: FDA-Public Use
  Company Number: IE-ROCHE-593111

PATIENT
  Sex: Female
  Weight: 70 kg

DRUGS (10)
  1. MIRCERA [Suspect]
     Dosage: DOSAGE REGIMEN REPORTED AS Q2/52.
     Route: 058
     Dates: start: 20080904
  2. BUMETANIDE [Concomitant]
  3. AMODIPIN [Concomitant]
  4. ISOSORBIDE MONONITRATE [Concomitant]
  5. NEXIUM [Concomitant]
  6. LOSARTAN [Concomitant]
  7. HYDROCORTISONE [Concomitant]
  8. BISOPROLOL FUMARATE [Concomitant]
  9. PRAVASTATIN [Concomitant]
  10. AMOXICILLIN + CLAVULANATE POTASSIUM [Concomitant]

REACTIONS (6)
  - BLOOD PARATHYROID HORMONE INCREASED [None]
  - CEREBROVASCULAR ACCIDENT [None]
  - MULTI-ORGAN DISORDER [None]
  - PNEUMONIA [None]
  - PULMONARY OEDEMA [None]
  - TROPONIN INCREASED [None]
